FAERS Safety Report 10222156 (Version 1)
Quarter: 2014Q2

REPORT INFORMATION
  Report Type: Spontaneous
  Country: US (occurrence: US)
  Receive Date: 20140606
  Receipt Date: 20140606
  Transmission Date: 20141212
  Serious: Yes (Death)
  Sender: FDA-Public Use
  Company Number: US-OTSUKA-US-2014-11159

PATIENT
  Sex: 0

DRUGS (6)
  1. BUSULFEX [Suspect]
     Indication: STEM CELL TRANSPLANT
     Dosage: 3.2 MG/KG, QD ON DAYS -3 AND -2 (INFUSION RATE 80 MG/KG/HOUR)
     Route: 042
  2. FLUDARABINE [Suspect]
     Indication: STEM CELL TRANSPLANT
     Dosage: 30 MG/M2, QD OVER 30 MIN DAYS -6 TO -2
     Route: 042
  3. THYMOGLOBULIN [Concomitant]
     Indication: PROPHYLAXIS AGAINST GRAFT VERSUS HOST DISEASE
     Dosage: TOTAL DOSE OF 4.5 MG/KG OR 6 MG/KG ADMINISTERED IN DIVIDED DOSES ON DAYS -2, -1 AND 0
     Route: 065
  4. THYMOGLOBULIN [Concomitant]
     Dosage: TOTAL DOSE OF 4.5 MG/KG OR 6 MG/KG ADMINISTERED IN DIVIDED DOSES ON DAYS -2, -1 AND 0
     Route: 065
  5. TACROLIMUS [Concomitant]
     Indication: GRAFT VERSUS HOST DISEASE
     Dosage: UNK
     Route: 065
  6. MYCOPHENOLATE MOFETIL [Concomitant]
     Indication: GRAFT VERSUS HOST DISEASE
     Dosage: UNK
     Route: 065

REACTIONS (3)
  - Death [Fatal]
  - Drug administration error [Unknown]
  - Off label use [Unknown]
